FAERS Safety Report 5403708-4 (Version None)
Quarter: 2007Q3

REPORT INFORMATION
  Report Type: 
  Country: None (occurrence: None)
  Receive Date: 20070802
  Receipt Date: 20070726
  Transmission Date: 20080115
  Serious: Yes (Other)
  Sender: FDA-Public Use
  Company Number: US-JNJFOC-20070706143

PATIENT
  Age: 55 Year
  Sex: Female

DRUGS (3)
  1. ACETAMINOPHEN [Suspect]
  2. ACETAMINOPHEN [Suspect]
     Indication: TOOTHACHE
     Dosage: 3-4 GRAMS/DAY FOR MORE THAN A WEEK
  3. OXYCODONE HCL [Concomitant]
     Indication: TOOTHACHE

REACTIONS (1)
  - LIVER FUNCTION TEST ABNORMAL [None]
